FAERS Safety Report 8807011 (Version 1)
Quarter: 2012Q4

REPORT INFORMATION
  Report Type: 
  Country: US (occurrence: US)
  Receive Date: 20120925
  Receipt Date: 20120925
  Transmission Date: 20130627
  Serious: Yes (Other)
  Sender: FDA-Public Use
  Company Number: US-JNJFOC-20120909126

PATIENT
  Age: 8 Year
  Sex: Male
  Weight: 40.82 kg

DRUGS (2)
  1. ZYRTEC IR [Suspect]
     Route: 048
  2. ZYRTEC IR [Suspect]
     Indication: SEASONAL ALLERGY
     Dosage: 1 tablet once a day for 3 months
     Route: 048

REACTIONS (2)
  - Hallucination, auditory [Not Recovered/Not Resolved]
  - Insomnia [Not Recovered/Not Resolved]
